FAERS Safety Report 8462806-1 (Version None)
Quarter: 2012Q2

REPORT INFORMATION
  Report Type: 
  Country: None (occurrence: None)
  Receive Date: 20120625
  Receipt Date: 20120615
  Transmission Date: 20120825
  Serious: Yes (Hospitalization, Other)
  Sender: FDA-Public Use
  Company Number: US-MPIJNJ-2011-05010

PATIENT
  Sex: Male
  Weight: 99.773 kg

DRUGS (4)
  1. DECADRON [Suspect]
     Indication: MULTIPLE MYELOMA
     Dosage: 40 MG, CYCLIC
     Route: 042
     Dates: start: 20101230, end: 20110602
  2. PROVENTIL HFA                      /00139501/ [Concomitant]
     Indication: CHRONIC OBSTRUCTIVE PULMONARY DISEASE
  3. VELCADE [Suspect]
     Indication: MULTIPLE MYELOMA
     Dosage: 0.651 MG/M2, CYCLIC
     Route: 042
     Dates: start: 20101230, end: 20110602
  4. ASPIRIN W/DIPYRIDAMOLE [Concomitant]
     Indication: PRODUCT USED FOR UNKNOWN INDICATION
     Dosage: 0.651 UNK, BID
     Route: 048
     Dates: start: 20110613

REACTIONS (7)
  - GENERALISED OEDEMA [None]
  - RESPIRATORY FAILURE [None]
  - MENTAL STATUS CHANGES [None]
  - HYPOPROTEINAEMIA [None]
  - PULMONARY OEDEMA [None]
  - LOSS OF CONSCIOUSNESS [None]
  - CHRONIC OBSTRUCTIVE PULMONARY DISEASE [None]
